FAERS Safety Report 9353433 (Version 2)
Quarter: 2013Q3

REPORT INFORMATION
  Report Type: Spontaneous
  Country: DE (occurrence: DE)
  Receive Date: 20130618
  Receipt Date: 20130704
  Transmission Date: 20140515
  Serious: Yes (Other)
  Sender: FDA-Public Use
  Company Number: DE-PFIZER INC-2013150401

PATIENT
  Age: 80 Year
  Sex: Female
  Weight: 50 kg

DRUGS (10)
  1. LYRICA [Suspect]
     Indication: NEURALGIA
     Dosage: 75 MG, 2X/DAY
     Dates: start: 20130502
  2. LYRICA [Suspect]
     Dosage: 25 MG IN THE MORNING, 50 MG IN THE EVENING
     Dates: start: 20130510
  3. LYRICA [Suspect]
     Dosage: 75 MG, UNK
  4. OXYCODONE [Concomitant]
     Dosage: UNK
  5. TORASEMIDE [Concomitant]
  6. BISOPROLOL [Concomitant]
  7. SPIRONOLACTONE [Concomitant]
  8. BONVIVA [Concomitant]
  9. PREDNISOLON [Concomitant]
  10. SPIRO COMP. [Concomitant]

REACTIONS (7)
  - Withdrawal syndrome [Unknown]
  - Restlessness [Unknown]
  - Anxiety [Unknown]
  - Pain [Unknown]
  - Vision blurred [Recovering/Resolving]
  - Visual impairment [Unknown]
  - Visual acuity reduced [Unknown]
